FAERS Safety Report 9281183 (Version 2)
Quarter: 2013Q3

REPORT INFORMATION
  Report Type: Spontaneous
  Country: FR (occurrence: FR)
  Receive Date: 20130509
  Receipt Date: 20130715
  Transmission Date: 20140515
  Serious: Yes (Other)
  Sender: FDA-Public Use
  Company Number: PHHY2013FR044739

PATIENT
  Age: 62 Year
  Sex: Female

DRUGS (4)
  1. FEMARA [Suspect]
     Indication: BREAST CANCER
     Dosage: UNK UKN, UNK
     Route: 048
     Dates: start: 201209
  2. LEVOTHYROX [Interacting]
     Indication: THYROID CANCER
     Dosage: 125 UG, QD
     Route: 048
     Dates: start: 1990, end: 201209
  3. LEVOTHYROX [Interacting]
     Dosage: 75 UG, UNK
     Route: 048
     Dates: end: 20130228
  4. LEVOTHYROX [Interacting]
     Dosage: 62.5 UG, UNK
     Route: 048

REACTIONS (2)
  - Hyperthyroidism [Recovered/Resolved]
  - Drug interaction [Unknown]
